FAERS Safety Report 7318565-9 (Version None)
Quarter: 2011Q1

REPORT INFORMATION
  Report Type: 
  Country: None (occurrence: None)
  Receive Date: 20110218
  Receipt Date: 20110218
  Transmission Date: 20110831
  Serious: Yes (Disabling)
  Sender: FDA-Public Use
  Company Number: None

PATIENT
  Age: 45 Year
  Sex: Male
  Weight: 117.9352 kg

DRUGS (1)
  1. DEXILANT [Suspect]
     Dosage: 30MG 2X A DAY

REACTIONS (4)
  - LIP SWELLING [None]
  - LIP PAIN [None]
  - IMPAIRED HEALING [None]
  - WOUND [None]
